FAERS Safety Report 7586936-1 (Version None)
Quarter: 2011Q3

REPORT INFORMATION
  Report Type: 
  Country: None (occurrence: None)
  Receive Date: 20110701
  Receipt Date: 20110622
  Transmission Date: 20111222
  Serious: Yes (Other)
  Sender: FDA-Public Use
  Company Number: SE-UCBSA-034153

PATIENT
  Sex: Female

DRUGS (4)
  1. EBETREX [Concomitant]
     Indication: RHEUMATOID ARTHRITIS
  2. FOLACIN [Concomitant]
     Indication: DRUG TOXICITY PROPHYLAXIS
     Dosage: 4 DAYS A WEEK
  3. BEHEPAN [Concomitant]
     Indication: VITAMIN B12 DEFICIENCY
  4. CIMZIA [Suspect]
     Indication: RHEUMATOID ARTHRITIS
     Route: 058
     Dates: start: 20110413

REACTIONS (4)
  - DIZZINESS [None]
  - TINNITUS [None]
  - INJECTION SITE PAIN [None]
  - BALANCE DISORDER [None]
